FAERS Safety Report 20577909 (Version 1)
Quarter: 2022Q1

REPORT INFORMATION
  Report Type: Report from Study
  Country: DE (occurrence: DE)
  Receive Date: 20220310
  Receipt Date: 20220310
  Transmission Date: 20220423
  Serious: Yes (Hospitalization, Other)
  Sender: FDA-Public Use
  Company Number: DE-TAKEDA-DE201817360

PATIENT
  Age: 59 Year
  Sex: Female
  Weight: 50 kg

DRUGS (8)
  1. TEDUGLUTIDE [Suspect]
     Active Substance: TEDUGLUTIDE
     Indication: Short-bowel syndrome
     Dosage: 2.6 MG, 1X/DAY:QD
     Route: 065
     Dates: start: 20160822
  2. TEDUGLUTIDE [Suspect]
     Active Substance: TEDUGLUTIDE
     Indication: Short-bowel syndrome
     Dosage: 2.6 MG, 1X/DAY:QD
     Route: 065
     Dates: start: 20160822
  3. TEDUGLUTIDE [Suspect]
     Active Substance: TEDUGLUTIDE
     Indication: Short-bowel syndrome
     Dosage: 2.6 MG, 1X/DAY:QD
     Route: 065
     Dates: start: 20160822
  4. TEDUGLUTIDE [Suspect]
     Active Substance: TEDUGLUTIDE
     Indication: Short-bowel syndrome
     Dosage: 2.6 MG, 1X/DAY:QD
     Route: 065
     Dates: start: 20160822
  5. CEFUROXIM                          /00454601/ [Concomitant]
     Indication: Infection
     Dosage: 1.50 GRAM, TID
     Route: 042
     Dates: start: 20170203, end: 20170203
  6. VANCOMYCIN [Concomitant]
     Active Substance: VANCOMYCIN
     Indication: Infection
     Dosage: 1.00 GRAM, BID
     Route: 042
     Dates: start: 20170203, end: 20170206
  7. VANCOMYCIN [Concomitant]
     Active Substance: VANCOMYCIN
     Dosage: 1.00 GRAM, BID
     Route: 042
     Dates: start: 20170203, end: 20170206
  8. VANCOMYCIN [Concomitant]
     Active Substance: VANCOMYCIN
     Dosage: 0.50 GRAM, BID
     Route: 042
     Dates: start: 20170201, end: 20170202

REACTIONS (1)
  - Septic embolus [Recovered/Resolved]

NARRATIVE: CASE EVENT DATE: 20170101
